FAERS Safety Report 6866546-1 (Version None)
Quarter: 2010Q2

REPORT INFORMATION
  Report Type: 
  Country: None (occurrence: None)
  Receive Date: 20100528
  Receipt Date: 20100208
  Transmission Date: 20101027
  Serious: No
  Sender: FDA-Public Use
  Company Number: 2010009039

PATIENT
  Age: 81 Year
  Sex: Female
  Weight: 55.8 kg

DRUGS (4)
  1. TOVIAZ [Suspect]
     Indication: HYPERTONIC BLADDER
     Dosage: 8 MG, 1X/DAY, ORAL
     Route: 048
     Dates: start: 20091021, end: 20100116
  2. METFORMIN HCL [Concomitant]
  3. ESTRADIOL [Concomitant]
  4. THYROID TAB [Concomitant]

REACTIONS (1)
  - DIARRHOEA [None]
